FAERS Safety Report 9013071 (Version 2)
Quarter: 2013Q1

REPORT INFORMATION
  Report Type: Spontaneous
  Country: JP (occurrence: JP)
  Receive Date: 20130115
  Receipt Date: 20130121
  Transmission Date: 20140127
  Serious: Yes (Other)
  Sender: FDA-Public Use
  Company Number: JP-009507513-1301JPN005385

PATIENT
  Age: 59 Year
  Sex: Male

DRUGS (1)
  1. GLACTIV [Suspect]
     Dosage: 50 MG, QD
     Route: 048

REACTIONS (2)
  - Bile duct stone [Unknown]
  - Surgery [Unknown]
